FAERS Safety Report 20584012 (Version 2)
Quarter: 2022Q2

REPORT INFORMATION
  Report Type: Spontaneous
  Country: PL (occurrence: PL)
  Receive Date: 20220311
  Receipt Date: 20220517
  Transmission Date: 20220720
  Serious: Yes (Hospitalization, Other)
  Sender: FDA-Public Use
  Company Number: PL-PFIZER INC-202200358680

PATIENT
  Age: 44 Year
  Sex: Female

DRUGS (2)
  1. FILGRASTIM [Suspect]
     Active Substance: FILGRASTIM
     Indication: Allogenic stem cell transplantation
     Dosage: 5 UG/ KGX2/D (6 DAYS)
     Dates: start: 20081204, end: 20081209
  2. TRAMADOL [Concomitant]
     Active Substance: TRAMADOL
     Indication: Bone pain
     Dosage: 100 MG, 2X/DAY TWICE A DAY
     Route: 048

REACTIONS (1)
  - Glomerulonephritis membranoproliferative [Recovered/Resolved]

NARRATIVE: CASE EVENT DATE: 20081208
